FAERS Safety Report 10529201 (Version 1)
Quarter: 2014Q4

REPORT INFORMATION
  Report Type: Report from Study
  Country: US (occurrence: US)
  Receive Date: 20141020
  Receipt Date: 20141020
  Transmission Date: 20150528
  Serious: Yes (Hospitalization)
  Sender: FDA-Public Use
  Company Number: US-TAKEDA-2014TUS010113

PATIENT
  Age: 59 Year
  Sex: Female

DRUGS (15)
  1. TRIBENZOR [Concomitant]
     Active Substance: AMLODIPINE BESYLATE\HYDROCHLOROTHIAZIDE\OLMESARTAN MEDOXOMIL
     Dosage: 40/5/12.5, UNK
     Dates: end: 201409
  2. LATANOPROST. [Concomitant]
     Active Substance: LATANOPROST
     Dosage: UNK
  3. CALTRATE WITH VITAMIN D [Concomitant]
     Active Substance: CALCIUM CARBONATE\VITAMIN D
     Dosage: 1 DF, BID
  4. THERAPEUTIC MULTIVITAMIN [Concomitant]
     Dosage: UNK, QD
  5. FISH OIL [Concomitant]
     Active Substance: FISH OIL
     Dosage: 1200 MG, UNK
  6. NEURONTIN [Concomitant]
     Active Substance: GABAPENTIN
     Dosage: UNK
  7. VITAMIN D [Concomitant]
     Active Substance: CHOLECALCIFEROL
     Dosage: 1 DF, BID
  8. VITAMIN C [Concomitant]
     Active Substance: ASCORBIC ACID
     Dosage: 1000 MG, UNK
     Dates: end: 201409
  9. ZOCOR [Concomitant]
     Active Substance: SIMVASTATIN
     Dosage: 10 MG, HS
  10. DEXILANT [Suspect]
     Active Substance: DEXLANSOPRAZOLE
     Indication: PRODUCT USED FOR UNKNOWN INDICATION
     Dosage: 60 MG, QD
     Route: 065
  11. NEXIUM [Concomitant]
     Active Substance: ESOMEPRAZOLE MAGNESIUM
     Dosage: 40 MG, QD
  12. AMPYRA [Suspect]
     Active Substance: DALFAMPRIDINE
     Indication: EYE MOVEMENT DISORDER
     Dosage: 10 MG, EVERY 12 HOURS
     Route: 048
     Dates: start: 201407, end: 2014
  13. AMPYRA [Suspect]
     Active Substance: DALFAMPRIDINE
     Dosage: 10 MG, EVERY 12 HOURS
     Route: 048
     Dates: start: 2014, end: 20140924
  14. KLONOPIN [Concomitant]
     Active Substance: CLONAZEPAM
     Dosage: UNK
  15. VITAMIN E [Concomitant]
     Active Substance: .ALPHA.-TOCOPHEROL
     Dosage: 400 IU, BID

REACTIONS (8)
  - Diarrhoea [Not Recovered/Not Resolved]
  - Blood count abnormal [Recovering/Resolving]
  - Dehydration [Recovering/Resolving]
  - Gastric polyps [Unknown]
  - Malaise [Unknown]
  - Blood pressure decreased [Recovering/Resolving]
  - Gastrointestinal inflammation [Unknown]
  - Neck pain [Unknown]

NARRATIVE: CASE EVENT DATE: 20140905
